FAERS Safety Report 6537424-2 (Version None)
Quarter: 2010Q1

REPORT INFORMATION
  Report Type: 
  Country: None (occurrence: None)
  Receive Date: 20100114
  Receipt Date: 20100104
  Transmission Date: 20100710
  Serious: Yes (Hospitalization, Other)
  Sender: FDA-Public Use
  Company Number: GB-ABBOTT-07P-167-0362386-00

PATIENT
  Sex: Male

DRUGS (9)
  1. EPILIM [Suspect]
     Indication: AFFECTIVE DISORDER
     Route: 048
     Dates: start: 20050101, end: 20060801
  2. EPILIM [Suspect]
     Indication: BIPOLAR DISORDER
  3. EPILIM [Suspect]
  4. ARIPIPRAZOLE [Interacting]
     Indication: SCHIZOPHRENIA
     Route: 048
     Dates: end: 20050101
  5. ARIPIPRAZOLE [Interacting]
     Route: 048
     Dates: start: 20050101
  6. ARIPIPRAZOLE [Interacting]
     Route: 048
  7. ARIPIPRAZOLE [Interacting]
     Route: 048
     Dates: start: 20061101, end: 20070101
  8. ARIPIPRAZOLE [Interacting]
     Route: 048
  9. ARIPIPRAZOLE [Interacting]
     Route: 048

REACTIONS (10)
  - BALANCE DISORDER [None]
  - CHEST DISCOMFORT [None]
  - DRUG INTERACTION [None]
  - DRUG LEVEL BELOW THERAPEUTIC [None]
  - DYSARTHRIA [None]
  - DYSPNOEA [None]
  - GYNAECOMASTIA [None]
  - MENTAL IMPAIRMENT [None]
  - WEIGHT INCREASED [None]
  - WHEEZING [None]
